FAERS Safety Report 9448776 (Version 1)
Quarter: 2013Q3

REPORT INFORMATION
  Report Type: Spontaneous
  Country: AU (occurrence: AU)
  Receive Date: 20130808
  Receipt Date: 20130808
  Transmission Date: 20140515
  Serious: Yes (Death, Other)
  Sender: FDA-Public Use
  Company Number: AU-CELGENEUS-008-21660-13074050

PATIENT
  Age: 74 Year
  Sex: Male

DRUGS (3)
  1. ABRAXANE [Suspect]
     Indication: THYROID CANCER
     Route: 065
  2. CISPLATIN [Concomitant]
     Indication: THYROID CANCER
     Route: 065
  3. STRIDOR [Concomitant]
     Indication: PRODUCT USED FOR UNKNOWN INDICATION
     Route: 065

REACTIONS (3)
  - Death [Fatal]
  - Thyroid cancer metastatic [Unknown]
  - Dyspnoea [Unknown]
